FAERS Safety Report 11865600 (Version 1)
Quarter: 2015Q4

REPORT INFORMATION
  Report Type: Spontaneous
  Country: DE (occurrence: DE)
  Receive Date: 20151223
  Receipt Date: 20151223
  Transmission Date: 20160305
  Serious: Yes (Other)
  Sender: FDA-Public Use
  Company Number: DE-TEVA-618760GER

PATIENT
  Age: 1 Day
  Sex: Male

DRUGS (2)
  1. FOLIO FORTE [Concomitant]
     Active Substance: FOLIC ACID\VITAMINS
     Indication: PROPHYLAXIS OF NEURAL TUBE DEFECT
     Dosage: .8 MILLIGRAM DAILY;
     Route: 064
     Dates: start: 20140925, end: 20150610
  2. TRAMADOL. [Suspect]
     Active Substance: TRAMADOL
     Indication: FIBROMYALGIA
     Dosage: 200 MILLIGRAM DAILY;
     Route: 064
     Dates: start: 20140925, end: 20150610

REACTIONS (6)
  - Apnoea neonatal [Recovered/Resolved]
  - Bradycardia neonatal [Recovered/Resolved]
  - Melanocytic naevus [Not Recovered/Not Resolved]
  - Temperature regulation disorder [Recovered/Resolved]
  - Respiratory disorder neonatal [Recovered/Resolved]
  - Foetal exposure during pregnancy [Unknown]

NARRATIVE: CASE EVENT DATE: 20150610
